FAERS Safety Report 7298181-8 (Version None)
Quarter: 2011Q1

REPORT INFORMATION
  Report Type: 
  Country: None (occurrence: None)
  Receive Date: 20110201
  Receipt Date: 20101220
  Transmission Date: 20110831
  Serious: Yes (Other)
  Sender: FDA-Public Use
  Company Number: OMX-2010-00145

PATIENT

DRUGS (2)
  1. APPLICATOR [Concomitant]
  2. EVICEL [Suspect]
     Indication: SURGERY
     Route: 061

REACTIONS (3)
  - POST PROCEDURAL HAEMORRHAGE [None]
  - PRODUCT QUALITY ISSUE [None]
  - DRUG EFFECT DECREASED [None]
